FAERS Safety Report 17886713 (Version 2)
Quarter: 2020Q2

REPORT INFORMATION
  Report Type: Report from Study
  Country: BR (occurrence: BR)
  Receive Date: 20200611
  Receipt Date: 20200625
  Transmission Date: 20200714
  Serious: Yes (Other)
  Sender: FDA-Public Use
  Company Number: NVSC2020BR162820

PATIENT
  Age: 69 Year
  Sex: Male

DRUGS (2)
  1. COSENTYX [Suspect]
     Active Substance: SECUKINUMAB
     Indication: PSORIASIS
     Dosage: UNK
     Route: 065
     Dates: start: 201907
  2. COSENTYX [Suspect]
     Active Substance: SECUKINUMAB
     Indication: PSORIATIC ARTHROPATHY
     Dosage: UNK
     Route: 065
     Dates: start: 20200601

REACTIONS (9)
  - Oropharyngeal pain [Recovered/Resolved]
  - Scar [Recovering/Resolving]
  - Myalgia [Recovered/Resolved]
  - Nasal congestion [Recovered/Resolved]
  - COVID-19 [Recovered/Resolved]
  - Parosmia [Recovered/Resolved]
  - Pain [Recovered/Resolved]
  - Spinal disorder [Recovered/Resolved]
  - Skin plaque [Recovering/Resolving]

NARRATIVE: CASE EVENT DATE: 20200313
